FAERS Safety Report 9107902 (Version 1)
Quarter: 2013Q1

REPORT INFORMATION
  Report Type: Spontaneous
  Country: US (occurrence: US)
  Receive Date: 20130221
  Receipt Date: 20130221
  Transmission Date: 20140127
  Serious: No
  Sender: FDA-Public Use
  Company Number: US-PFIZER INC-2013064967

PATIENT
  Age: 61 Year
  Sex: Female
  Weight: 68.03 kg

DRUGS (6)
  1. ADVIL [Suspect]
     Indication: HEADACHE
     Dosage: 200 MG, UNK
     Route: 048
  2. ADVIL [Suspect]
     Indication: ARTHRALGIA
  3. XANAX [Concomitant]
     Indication: DEPRESSION
     Dosage: 0.25 MG, DAILY
  4. XANAX [Concomitant]
     Indication: ANXIETY
  5. NARDIL [Concomitant]
     Indication: DEPRESSION
     Dosage: 30 MG, DAILY
  6. NARDIL [Concomitant]
     Indication: ANXIETY

REACTIONS (1)
  - Thyroid disorder [Unknown]
